FAERS Safety Report 13708982 (Version 1)
Quarter: 2017Q3

REPORT INFORMATION
  Report Type: Report from Study
  Country: US (occurrence: US)
  Receive Date: 20170701
  Receipt Date: 20170701
  Transmission Date: 20171127
  Serious: Yes (Other)
  Sender: FDA-Public Use
  Company Number: US-AMGEN-USASL2017097424

PATIENT
  Sex: Female

DRUGS (2)
  1. ENBREL [Suspect]
     Active Substance: ETANERCEPT
     Indication: PSORIASIS
     Dosage: 50 MG, QWK
     Route: 065
  2. ENBREL [Suspect]
     Active Substance: ETANERCEPT
     Indication: PSORIATIC ARTHROPATHY
     Dosage: 50 MG, QWK
     Route: 065
     Dates: start: 2006

REACTIONS (6)
  - Injection site pain [Unknown]
  - Underdose [Unknown]
  - Injection site injury [Unknown]
  - Joint stiffness [Unknown]
  - Diabetes mellitus [Unknown]
  - Alopecia [Unknown]

NARRATIVE: CASE EVENT DATE: 2013
